FAERS Safety Report 11985009 (Version 1)
Quarter: 2016Q1

REPORT INFORMATION
  Report Type: Report from Study
  Country: DE (occurrence: DE)
  Receive Date: 20160201
  Receipt Date: 20160201
  Transmission Date: 20160526
  Serious: Yes (Life-Threatening, Hospitalization)
  Sender: FDA-Public Use
  Company Number: DE-ABBVIE-16K-062-1545429-00

PATIENT
  Age: 53 Year
  Sex: Male
  Weight: 84 kg

DRUGS (5)
  1. LODOTRA [Concomitant]
     Active Substance: PREDNISONE
     Indication: PRODUCT USED FOR UNKNOWN INDICATION
     Route: 048
     Dates: start: 200906
  2. HUMIRA [Suspect]
     Active Substance: ADALIMUMAB
     Indication: RHEUMATOID ARTHRITIS
     Route: 058
     Dates: start: 20101113, end: 201511
  3. ASPIRIN. [Concomitant]
     Active Substance: ASPIRIN
     Indication: PRODUCT USED FOR UNKNOWN INDICATION
  4. DEKRISTOL [Concomitant]
     Active Substance: CHOLECALCIFEROL
     Indication: PRODUCT USED FOR UNKNOWN INDICATION
  5. METHOTREXATE [Concomitant]
     Active Substance: METHOTREXATE
     Indication: PRODUCT USED FOR UNKNOWN INDICATION
     Route: 058
     Dates: start: 201401, end: 201511

REACTIONS (15)
  - Aortic valve incompetence [Unknown]
  - Demyelination [Unknown]
  - Bursitis [Recovered/Resolved]
  - Nuclear magnetic resonance imaging brain abnormal [Unknown]
  - Metastatic bronchial carcinoma [Unknown]
  - Spinal osteoarthritis [Unknown]
  - Vitreous floaters [Unknown]
  - Tricuspid valve incompetence [Unknown]
  - Visual impairment [Unknown]
  - Diplopia [Unknown]
  - Neuroendocrine carcinoma [Not Recovered/Not Resolved]
  - Left ventricular hypertrophy [Unknown]
  - Radioisotope scan abnormal [Unknown]
  - Diastolic dysfunction [Unknown]
  - Diplopia [Unknown]

NARRATIVE: CASE EVENT DATE: 2013
